FAERS Safety Report 20588878 (Version 1)
Quarter: 2022Q1

REPORT INFORMATION
  Report Type: Spontaneous
  Country: SA (occurrence: SA)
  Receive Date: 20220314
  Receipt Date: 20220314
  Transmission Date: 20220423
  Serious: Yes (Hospitalization, Other)
  Sender: FDA-Public Use
  Company Number: SA-ASTELLAS-2022US009062

PATIENT
  Age: 7 Year
  Sex: Female

DRUGS (22)
  1. TACROLIMUS [Suspect]
     Active Substance: TACROLIMUS
     Indication: Renal transplant
     Dosage: 0.3 MG/KG, EVERY 12 HOURS (DAY 1)
     Route: 065
  2. PREDNISONE [Concomitant]
     Active Substance: PREDNISONE
     Indication: Renal transplant
     Dosage: 200 MG, UNKNOWN FREQ. (DAY 0 IN RECOVERY)
     Route: 065
  3. PREDNISONE [Concomitant]
     Active Substance: PREDNISONE
     Dosage: 2 MG/KG, EVERY 6 HOURS (DAY 1)
     Route: 065
  4. PREDNISONE [Concomitant]
     Active Substance: PREDNISONE
     Dosage: 1.75 MG/KG, EVERY 6 HOURS (DAY 2)
     Route: 065
  5. PREDNISONE [Concomitant]
     Active Substance: PREDNISONE
     Dosage: 1.50 MG/KG, EVERY 6 HOURS (DAY 3)
     Route: 065
  6. PREDNISONE [Concomitant]
     Active Substance: PREDNISONE
     Dosage: 1.25 MG/KG, EVERY 12 HOURS (DAY 4-6)
     Route: 065
  7. PREDNISONE [Concomitant]
     Active Substance: PREDNISONE
     Dosage: 1.00 MG/KG, EVERY 12 HOURS (DAY 7-9)
     Route: 065
  8. PREDNISONE [Concomitant]
     Active Substance: PREDNISONE
     Dosage: 0.75 MG/KG, EVERY 12 HOURS (DAY 10-12)
     Route: 065
  9. PREDNISONE [Concomitant]
     Active Substance: PREDNISONE
     Dosage: 0.50 MG/KG, EVERY 12 HOURS (DAY 13-14)
     Route: 065
  10. PREDNISONE [Concomitant]
     Active Substance: PREDNISONE
     Dosage: 0.45 MG/KG, ONCE DAILY (WEEK 3)
     Route: 065
  11. PREDNISONE [Concomitant]
     Active Substance: PREDNISONE
     Dosage: 0.40 MG/KG, ONCE DAILY (WEEK 4)
     Route: 065
  12. PREDNISONE [Concomitant]
     Active Substance: PREDNISONE
     Dosage: 0.30 MG/KG, ONCE DAILY (WEEK 5)
     Route: 065
  13. PREDNISONE [Concomitant]
     Active Substance: PREDNISONE
     Dosage: 0.25 MG/KG, ONCE DAILY (WEEK 6-7)
     Route: 065
  14. PREDNISONE [Concomitant]
     Active Substance: PREDNISONE
     Dosage: 0.20 MG/KG, ONCE DAILY (WEEK 8-9)
     Route: 065
  15. PREDNISONE [Concomitant]
     Active Substance: PREDNISONE
     Dosage: 0.15 MG/KG, ONCE DAILY (WEEK 10-12)
     Route: 065
  16. PREDNISONE [Concomitant]
     Active Substance: PREDNISONE
     Dosage: 0.10 MG/KG, ONCE DAILY (WEEK 13-16)
     Route: 065
  17. PREDNISONE [Concomitant]
     Active Substance: PREDNISONE
     Dosage: 0.10 MG/KG, EVERY OTHER DAY (WEEK}16)
     Route: 065
  18. METHYLPREDNISOLONE [Concomitant]
     Active Substance: METHYLPREDNISOLONE
     Indication: Renal transplant
     Route: 065
  19. THYMOCYTE IMMUNE GLOBULIN NOS [Concomitant]
     Active Substance: THYMOCYTE IMMUNE GLOBULIN NOS
     Indication: Renal transplant
     Route: 065
  20. CEFAZOLIN [Concomitant]
     Active Substance: CEFAZOLIN
     Indication: Prophylaxis
     Dosage: 25 MG/KG, DOSES (3 DOSES PRE-TRANSPLANT IN 8 HR INTERVAL)
     Route: 065
  21. NYSTATIN [Concomitant]
     Active Substance: NYSTATIN
     Indication: Product used for unknown indication
     Dosage: 10 IU/KG, EVERY 6 HOURS (DAY 1)
     Route: 065
  22. GANCICLOVIR [Concomitant]
     Active Substance: GANCICLOVIR
     Indication: Product used for unknown indication
     Dosage: UNK UNK, EVERY 12 HOURS (ADJUSTED TO GFR)
     Route: 065

REACTIONS (3)
  - Focal segmental glomerulosclerosis [Recovering/Resolving]
  - Disease recurrence [Recovering/Resolving]
  - Haemolytic uraemic syndrome [Recovering/Resolving]
